FAERS Safety Report 5659673-8 (Version None)
Quarter: 2008Q1

REPORT INFORMATION
  Report Type: 
  Country: None (occurrence: None)
  Receive Date: 20080311
  Receipt Date: 20080306
  Transmission Date: 20080703
  Serious: Yes (Hospitalization)
  Sender: FDA-Public Use
  Company Number: SE-AVENTIS-200812083GDDC

PATIENT
  Age: 16 Year
  Sex: Female

DRUGS (1)
  1. FLAGYL [Suspect]
     Route: 048
     Dates: start: 20071008, end: 20071010

REACTIONS (2)
  - PYREXIA [None]
  - RASH ERYTHEMATOUS [None]
